FAERS Safety Report 7725164-3 (Version None)
Quarter: 2011Q3

REPORT INFORMATION
  Report Type: 
  Country: None (occurrence: None)
  Receive Date: 20110901
  Receipt Date: 20110822
  Transmission Date: 20111222
  Serious: Yes (Hospitalization, Disabling, Other)
  Sender: FDA-Public Use
  Company Number: US-MERCK-1012USA01316

PATIENT
  Age: 68 Year
  Sex: Female
  Weight: 82 kg

DRUGS (6)
  1. FOSAMAX [Suspect]
     Indication: OSTEOPOROSIS
     Route: 048
     Dates: start: 20020101, end: 20070225
  2. FOSAMAX [Suspect]
     Indication: OSTEOPENIA
     Route: 048
     Dates: start: 20020101, end: 20070225
  3. VITAMINS (UNSPECIFIED) [Concomitant]
     Route: 065
  4. FOSAMAX [Suspect]
     Route: 048
     Dates: start: 20080101
  5. FOSAMAX [Suspect]
     Route: 048
     Dates: start: 20080101
  6. FOSAMAX PLUS D [Suspect]
     Indication: OSTEOPOROSIS
     Route: 048
     Dates: start: 20070226, end: 20090501

REACTIONS (71)
  - METASTASES TO LIVER [None]
  - MUSCLE DISORDER [None]
  - LUMBAR SPINAL STENOSIS [None]
  - SJOGREN'S SYNDROME [None]
  - ARTHRALGIA [None]
  - INCREASED TENDENCY TO BRUISE [None]
  - BONE DISORDER [None]
  - BREAST DISORDER [None]
  - DIABETES MELLITUS [None]
  - AMNESIA [None]
  - SPINAL OSTEOARTHRITIS [None]
  - INTERVERTEBRAL DISC DISORDER [None]
  - HAEMORRHOIDS [None]
  - ROTATOR CUFF SYNDROME [None]
  - HYPERTENSIVE HEART DISEASE [None]
  - MULTIPLE FRACTURES [None]
  - TIBIA FRACTURE [None]
  - CARDIAC MURMUR [None]
  - GASTROOESOPHAGEAL REFLUX DISEASE [None]
  - FIBULA FRACTURE [None]
  - ELECTROCARDIOGRAM ABNORMAL [None]
  - MYELOPATHY [None]
  - TONGUE DISCOLOURATION [None]
  - SKIN LESION [None]
  - SINUSITIS [None]
  - SEROLOGY POSITIVE [None]
  - ABDOMINAL PAIN LOWER [None]
  - RENAL CYST [None]
  - PAIN IN EXTREMITY [None]
  - ADRENAL MASS [None]
  - SPONDYLOLISTHESIS [None]
  - DYSPNOEA [None]
  - DIVERTICULUM [None]
  - HYPOAESTHESIA [None]
  - LYMPHADENOPATHY [None]
  - SCOLIOSIS [None]
  - BLOOD CHOLESTEROL INCREASED [None]
  - COLONIC POLYP [None]
  - OSTEOPENIA [None]
  - TENDON PAIN [None]
  - TENDONITIS [None]
  - HYPERTENSION [None]
  - EXOSTOSIS [None]
  - BONE DENSITY DECREASED [None]
  - FALL [None]
  - OSTEOPOROSIS [None]
  - HEPATIC CYST [None]
  - TRICUSPID VALVE DISEASE [None]
  - SEBORRHOEIC KERATOSIS [None]
  - SUPRAVENTRICULAR EXTRASYSTOLES [None]
  - HYPERGLYCAEMIA [None]
  - PAIN [None]
  - RIB FRACTURE [None]
  - SWELLING [None]
  - RHEUMATOID ARTHRITIS [None]
  - RADICULITIS LUMBOSACRAL [None]
  - ILEUS [None]
  - FEMUR FRACTURE [None]
  - UPPER EXTREMITY MASS [None]
  - METASTATIC NEOPLASM [None]
  - BACK PAIN [None]
  - HEPATIC LESION [None]
  - JOINT EFFUSION [None]
  - KYPHOSIS [None]
  - VARICOSE VEIN [None]
  - TOOTH FRACTURE [None]
  - HYPERHIDROSIS [None]
  - RECTAL HAEMORRHAGE [None]
  - ARTHROPATHY [None]
  - HYPERLIPIDAEMIA [None]
  - BLOOD PRESSURE DIASTOLIC ABNORMAL [None]
